FAERS Safety Report 12741956 (Version 3)
Quarter: 2019Q3

REPORT INFORMATION
  Report Type: Spontaneous
  Country: CH (occurrence: CH)
  Receive Date: 20160914
  Receipt Date: 20190922
  Transmission Date: 20191004
  Serious: Yes (Life-Threatening, Hospitalization, Disabling, Other)
  Sender: FDA-Public Use
  Company Number: CH-CELGENEUS-CHE-2016088094

PATIENT
  Age: 60 Year
  Sex: Male
  Weight: 93 kg

DRUGS (2)
  1. OTEZLA [Suspect]
     Active Substance: APREMILAST
     Indication: PSORIASIS
     Route: 048
     Dates: start: 20151216, end: 20160514
  2. PIROXICAM. [Concomitant]
     Active Substance: PIROXICAM
     Indication: PRODUCT USED FOR UNKNOWN INDICATION
     Dosage: 20 MG
     Route: 048
     Dates: start: 20160622, end: 20160819

REACTIONS (3)
  - Drug ineffective [Unknown]
  - Cardiomyopathy [Not Recovered/Not Resolved]
  - Ventricular extrasystoles [Not Recovered/Not Resolved]

NARRATIVE: CASE EVENT DATE: 2016
